FAERS Safety Report 21444306 (Version 2)
Quarter: 2022Q4

REPORT INFORMATION
  Report Type: Spontaneous
  Country: US (occurrence: US)
  Receive Date: 20221012
  Receipt Date: 20221014
  Transmission Date: 20230113
  Serious: Yes (Other)
  Sender: FDA-Public Use
  Company Number: US-SUN PHARMACEUTICAL INDUSTRIES LTD-2022R1-358420

PATIENT
  Age: 78 Year
  Sex: Female

DRUGS (3)
  1. DOXYCYCLINE [Suspect]
     Active Substance: DOXYCYCLINE
     Indication: Mucous membrane pemphigoid
     Dosage: 100 MILLIGRAM, BID
     Route: 048
  2. DEXAMETHASONE [Suspect]
     Active Substance: DEXAMETHASONE
     Indication: Mucous membrane pemphigoid
     Dosage: UNK
     Route: 048
  3. NIACINAMIDE [Suspect]
     Active Substance: NIACINAMIDE
     Indication: Mucous membrane pemphigoid
     Dosage: 500 MILLIGRAM, BID
     Route: 065

REACTIONS (2)
  - Disease recurrence [Unknown]
  - Abdominal discomfort [Recovering/Resolving]

NARRATIVE: CASE EVENT DATE: 20210401
